FAERS Safety Report 19568139 (Version 2)
Quarter: 2023Q2

REPORT INFORMATION
  Report Type: Spontaneous
  Country: CA (occurrence: CA)
  Receive Date: 20210716
  Receipt Date: 20230401
  Transmission Date: 20230722
  Serious: Yes (Other)
  Sender: FDA-Public Use
  Company Number: None

PATIENT
  Age: 53 Year
  Sex: Female

DRUGS (50)
  1. NITROGLYCERIN [Suspect]
     Active Substance: NITROGLYCERIN
     Indication: Oesophageal spasm
     Route: 065
  2. NITROGLYCERIN [Suspect]
     Active Substance: NITROGLYCERIN
     Indication: Product used for unknown indication
     Route: 065
  3. POTASSIUM CHLORIDE [Suspect]
     Active Substance: POTASSIUM CHLORIDE
     Indication: Product used for unknown indication
     Route: 065
  4. PREDNISONE [Suspect]
     Active Substance: PREDNISONE
     Indication: Product used for unknown indication
     Route: 065
  5. ALBUTEROL [Suspect]
     Active Substance: ALBUTEROL
     Indication: Product used for unknown indication
     Route: 065
  6. SENOKOT [Suspect]
     Active Substance: SENNOSIDES
     Indication: Abdominal pain
     Route: 065
  7. NITROFURANTOIN [Suspect]
     Active Substance: NITROFURANTOIN
     Indication: Cystitis
     Route: 065
  8. SPIRIVA [Suspect]
     Active Substance: TIOTROPIUM BROMIDE MONOHYDRATE
     Indication: Product used for unknown indication
     Route: 065
  9. TYLENOL WITH CODEINE [Suspect]
     Active Substance: ACETAMINOPHEN\CODEINE PHOSPHATE
     Indication: Pruritus
     Route: 065
  10. VIOXX [Suspect]
     Active Substance: ROFECOXIB
     Indication: Urticaria
     Route: 065
  11. WELLBUTRIN [Suspect]
     Active Substance: BUPROPION HYDROCHLORIDE
     Indication: Urticaria
     Route: 065
  12. ALENDRONATE SODIUM\CHOLECALCIFEROL [Suspect]
     Active Substance: ALENDRONATE SODIUM\CHOLECALCIFEROL
     Indication: Osteoporosis postmenopausal
     Route: 065
  13. AMITRIPTYLINE [Suspect]
     Active Substance: AMITRIPTYLINE
     Indication: Depression
     Route: 065
  14. FUROSEMIDE [Suspect]
     Active Substance: FUROSEMIDE
     Indication: Fluid retention
     Route: 065
  15. FERROUS GLUCONATE [Suspect]
     Active Substance: FERROUS GLUCONATE
     Indication: Iron deficiency
     Route: 065
  16. SULFAMETHOXAZOLE\TRIMETHOPRIM [Suspect]
     Active Substance: SULFAMETHOXAZOLE\TRIMETHOPRIM
     Indication: Stomatitis
     Route: 065
  17. ATROVENT HFA [Suspect]
     Active Substance: IPRATROPIUM BROMIDE
     Indication: Product used for unknown indication
     Dosage: METERED-DOSE (AEROSOL)
     Route: 065
  18. AVELOX [Suspect]
     Active Substance: MOXIFLOXACIN HYDROCHLORIDE
     Indication: Rash
     Route: 065
  19. BREO ELLIPTA [Suspect]
     Active Substance: FLUTICASONE FUROATE\VILANTEROL TRIFENATATE
     Indication: Product used for unknown indication
     Dosage: INHALATION
     Route: 065
  20. CEFUROXIME AXETIL [Suspect]
     Active Substance: CEFUROXIME AXETIL
     Indication: Malaise
     Route: 065
  21. CELEBREX [Suspect]
     Active Substance: CELECOXIB
     Indication: Oesophageal pain
     Route: 065
  22. CEPHALEXIN [Suspect]
     Active Substance: CEPHALEXIN
     Indication: Vomiting
     Route: 065
  23. CIPROFLOXACIN HYDROCHLORIDE [Suspect]
     Active Substance: CIPROFLOXACIN HYDROCHLORIDE
     Indication: Urticaria
     Route: 065
  24. CLOPIDOGREL [Suspect]
     Active Substance: CLOPIDOGREL BISULFATE
     Indication: Anticoagulant therapy
     Route: 065
  25. PERINDOPRIL ARGININE [Suspect]
     Active Substance: PERINDOPRIL ARGININE
     Indication: Blood pressure measurement
     Route: 065
  26. CYMBALTA [Suspect]
     Active Substance: DULOXETINE HYDROCHLORIDE
     Indication: Depression
     Route: 065
  27. FLOVENT [Suspect]
     Active Substance: FLUTICASONE PROPIONATE
     Indication: Chronic obstructive pulmonary disease
     Route: 065
  28. GABAPENTIN [Suspect]
     Active Substance: GABAPENTIN
     Indication: Product used for unknown indication
     Route: 065
  29. GRAVOL [Suspect]
     Active Substance: DIMENHYDRINATE
     Indication: Anxiety
     Route: 065
  30. INDOMETHACIN SODIUM [Suspect]
     Active Substance: INDOMETHACIN SODIUM
     Indication: Vomiting
     Route: 065
  31. KETAMINE [Suspect]
     Active Substance: KETAMINE
     Indication: Hallucination
     Route: 065
  32. ALEVE [Suspect]
     Active Substance: NAPROXEN SODIUM
     Indication: Pruritus
     Route: 065
  33. INSULIN ASPART [Suspect]
     Active Substance: INSULIN ASPART
     Indication: Type 2 diabetes mellitus
     Dosage: SOLUTION SUBCUTANEOUS
     Route: 065
  34. PENICILLIN G [Suspect]
     Active Substance: PENICILLIN G
     Indication: Product used for unknown indication
     Route: 065
  35. ALENDRONATE SODIUM [Suspect]
     Active Substance: ALENDRONATE SODIUM
     Indication: Osteoporosis postmenopausal
     Route: 048
  36. BUPROPION [Suspect]
     Active Substance: BUPROPION
     Indication: Product used for unknown indication
     Route: 065
  37. CAFFEINE [Suspect]
     Active Substance: CAFFEINE
     Indication: Pruritus
     Route: 065
  38. CLARITHROMYCIN [Suspect]
     Active Substance: CLARITHROMYCIN
     Indication: Product used for unknown indication
     Route: 065
  39. NAPROXEN SODIUM [Suspect]
     Active Substance: NAPROXEN SODIUM
     Indication: Product used for unknown indication
     Route: 065
  40. NOVORAPID [Suspect]
     Active Substance: INSULIN ASPART
     Indication: Type 2 diabetes mellitus
     Dosage: SOLUTION SUBCUTANEOUS
     Route: 065
  41. CELEBREX [Suspect]
     Active Substance: CELECOXIB
     Indication: Abdominal pain upper
     Route: 065
  42. CEPHALEXIN [Suspect]
     Active Substance: CEPHALEXIN
     Indication: Malaise
     Route: 065
  43. CEPHALEXIN [Suspect]
     Active Substance: CEPHALEXIN
     Indication: Dizziness
     Route: 065
  44. CYMBALTA [Suspect]
     Active Substance: DULOXETINE HYDROCHLORIDE
     Indication: Anxiety
     Route: 065
  45. FLOVENT [Suspect]
     Active Substance: FLUTICASONE PROPIONATE
     Indication: Asthma
     Route: 065
  46. POTASSIUM CHLORIDE [Suspect]
     Active Substance: POTASSIUM CHLORIDE
     Indication: Product used for unknown indication
     Dosage: NOT SPECIFIED
     Route: 065
  47. CEFUROXIME AXETIL [Suspect]
     Active Substance: CEFUROXIME AXETIL
     Indication: Fatigue
     Route: 065
  48. CEFUROXIME AXETIL [Suspect]
     Active Substance: CEFUROXIME AXETIL
     Indication: Diarrhoea
     Route: 065
  49. INDOMETHACIN SODIUM [Suspect]
     Active Substance: INDOMETHACIN SODIUM
     Indication: Vision blurred
     Route: 065
  50. INDOMETHACIN SODIUM [Suspect]
     Active Substance: INDOMETHACIN SODIUM
     Indication: Abdominal pain upper
     Route: 065

REACTIONS (30)
  - Abdominal pain upper [Not Recovered/Not Resolved]
  - Agitation [Not Recovered/Not Resolved]
  - Anxiety [Not Recovered/Not Resolved]
  - Bronchitis [Not Recovered/Not Resolved]
  - Cystitis [Not Recovered/Not Resolved]
  - Depression [Not Recovered/Not Resolved]
  - Diarrhoea [Not Recovered/Not Resolved]
  - Dizziness [Not Recovered/Not Resolved]
  - Fatigue [Not Recovered/Not Resolved]
  - Feeling abnormal [Not Recovered/Not Resolved]
  - Fibromyalgia [Not Recovered/Not Resolved]
  - Fluid retention [Not Recovered/Not Resolved]
  - Hallucination [Not Recovered/Not Resolved]
  - Hyperhidrosis [Not Recovered/Not Resolved]
  - Lymphoedema [Not Recovered/Not Resolved]
  - Malaise [Not Recovered/Not Resolved]
  - Migraine [Not Recovered/Not Resolved]
  - Myocardial infarction [Not Recovered/Not Resolved]
  - Oesophageal pain [Not Recovered/Not Resolved]
  - Oesophageal spasm [Not Recovered/Not Resolved]
  - Pneumonia [Not Recovered/Not Resolved]
  - Pruritus [Not Recovered/Not Resolved]
  - Rash [Not Recovered/Not Resolved]
  - Sleep apnoea syndrome [Not Recovered/Not Resolved]
  - Stomatitis [Not Recovered/Not Resolved]
  - Tinnitus [Not Recovered/Not Resolved]
  - Urticaria [Not Recovered/Not Resolved]
  - Vision blurred [Not Recovered/Not Resolved]
  - Vomiting [Not Recovered/Not Resolved]
  - Abdominal pain [Not Recovered/Not Resolved]
